FAERS Safety Report 17817006 (Version 3)
Quarter: 2020Q2

REPORT INFORMATION
  Report Type: Spontaneous
  Country: GB (occurrence: GB)
  Receive Date: 20200522
  Receipt Date: 20200602
  Transmission Date: 20200714
  Serious: Yes (Other)
  Sender: FDA-Public Use
  Company Number: NVSC2020GB133996

PATIENT
  Age: 32 Year
  Sex: Male

DRUGS (5)
  1. RISPERIDONE. [Suspect]
     Active Substance: RISPERIDONE
     Indication: SCHIZOPHRENIA
  2. ARIPIPRAZOLE. [Suspect]
     Active Substance: ARIPIPRAZOLE
     Indication: BORDERLINE PERSONALITY DISORDER
     Dosage: 20 MG, QD,DOSAGE WAS TITRATED UP TO 20MG DAILY
     Route: 065
  3. ARIPIPRAZOLE. [Suspect]
     Active Substance: ARIPIPRAZOLE
     Indication: SCHIZOPHRENIA
     Dosage: 5 MG, QD, DOSE STARTED AT 5MG AND TITRATED TO 20MG. A MONTH AFTER THE TITRATION HE DEVELOPED THE AES
     Route: 065
  4. ARIPIPRAZOLE. [Suspect]
     Active Substance: ARIPIPRAZOLE
     Indication: PERSECUTORY DELUSION
  5. RISPERIDONE. [Suspect]
     Active Substance: RISPERIDONE
     Indication: PERSECUTORY DELUSION
     Dosage: 4 MG, QD
     Route: 065

REACTIONS (10)
  - Hypersexuality [Recovered/Resolved]
  - Feeling guilty [Recovered/Resolved]
  - Sexually inappropriate behaviour [Recovered/Resolved]
  - Emotional distress [Recovered/Resolved]
  - Homosexuality [Recovered/Resolved]
  - Gender dysphoria [Recovered/Resolved]
  - Libido decreased [Recovered/Resolved]
  - Anxiety [Recovered/Resolved]
  - Thinking abnormal [Recovered/Resolved]
  - Erectile dysfunction [Recovered/Resolved]
